FAERS Safety Report 4755258-6 (Version None)
Quarter: 2005Q3

REPORT INFORMATION
  Report Type: 
  Country: None (occurrence: None)
  Receive Date: 20050829
  Receipt Date: 20050414
  Transmission Date: 20060218
  Serious: Yes (Hospitalization, Disabling, Other)
  Sender: FDA-Public Use
  Company Number: US-MERCK-0504USA02849

PATIENT
  Age: 63 Year
  Sex: Female
  Weight: 108 kg

DRUGS (11)
  1. VIOXX [Suspect]
     Indication: ARTHRALGIA
     Route: 048
     Dates: start: 20010201, end: 20041214
  2. VIOXX [Suspect]
     Indication: OSTEOARTHRITIS
     Route: 048
     Dates: start: 20010201, end: 20041214
  3. TOPROL-XL [Concomitant]
     Route: 065
     Dates: start: 20020101, end: 20020101
  4. WELLBUTRIN [Concomitant]
     Route: 065
  5. HYDROCHLOROTHIAZIDE [Concomitant]
     Route: 065
     Dates: start: 20031002, end: 20041214
  6. DILTIAZEM HYDROCHLORIDE [Concomitant]
     Route: 065
  7. ZOLOFT [Concomitant]
     Route: 065
     Dates: start: 20021205, end: 20041214
  8. ADVAIR DISKUS 100/50 [Concomitant]
     Route: 065
     Dates: start: 20031002, end: 20041214
  9. TYLENOL [Concomitant]
     Route: 065
     Dates: start: 20031002
  10. VITAMINS (UNSPECIFIED) [Concomitant]
     Route: 065
     Dates: start: 20031002
  11. GUAIFENESIN [Concomitant]
     Route: 065
     Dates: start: 20031021, end: 20041214

REACTIONS (6)
  - ADVERSE EVENT [None]
  - ATHEROSCLEROSIS [None]
  - CARDIAC VALVE DISEASE [None]
  - CEREBROVASCULAR ACCIDENT [None]
  - DYSPNOEA [None]
  - INJURY [None]
